FAERS Safety Report 16779691 (Version 1)
Quarter: 2019Q3

REPORT INFORMATION
  Report Type: Spontaneous
  Country: US (occurrence: US)
  Receive Date: 20190906
  Receipt Date: 20190906
  Transmission Date: 20191005
  Serious: Yes (Life-Threatening, Hospitalization)
  Sender: FDA-Public Use
  Company Number: US-TORRENT-00009156

PATIENT
  Age: 22 Year
  Sex: Female

DRUGS (1)
  1. BUPROPION. [Suspect]
     Active Substance: BUPROPION
     Indication: PRODUCT USED FOR UNKNOWN INDICATION
     Dosage: EXTENDED RELEASE TABLETS

REACTIONS (9)
  - Overdose [Recovered/Resolved]
  - Ventricular tachycardia [Recovered/Resolved]
  - Toxicity to various agents [Recovered/Resolved]
  - Circulatory collapse [Recovered/Resolved]
  - Generalised tonic-clonic seizure [Recovered/Resolved]
  - Torsade de pointes [Recovered/Resolved]
  - Ventricular extrasystoles [Recovered/Resolved]
  - Hypotension [Recovered/Resolved]
  - Pulseless electrical activity [Recovered/Resolved]
